FAERS Safety Report 20444210 (Version 1)
Quarter: 2022Q1

REPORT INFORMATION
  Report Type: Report from Study
  Country: BR (occurrence: BR)
  Receive Date: 20220208
  Receipt Date: 20220208
  Transmission Date: 20220423
  Serious: Yes (Other)
  Sender: FDA-Public Use
  Company Number: BR-ABBVIE-22K-020-4260947-00

PATIENT
  Age: 80 Year
  Sex: Female
  Weight: 72 kg

DRUGS (2)
  1. SKYRIZI [Suspect]
     Active Substance: RISANKIZUMAB-RZAA
     Indication: Psoriasis
     Dosage: 2 SYRINGES (75MG /0.83 ML EACH)
     Route: 058
  2. FOSTAIR DPI [Concomitant]
     Indication: Chronic obstructive pulmonary disease
     Dosage: 2 INHALATIONS
     Route: 055

REACTIONS (7)
  - Spinal column injury [Recovering/Resolving]
  - Spinal pain [Unknown]
  - Spinal osteoarthritis [Not Recovered/Not Resolved]
  - Mobility decreased [Recovering/Resolving]
  - Pain [Recovering/Resolving]
  - Pain [Not Recovered/Not Resolved]
  - Psoriasis [Recovering/Resolving]

NARRATIVE: CASE EVENT DATE: 20220101
